FAERS Safety Report 8405296-7 (Version None)
Quarter: 2012Q2

REPORT INFORMATION
  Report Type: 
  Country: None (occurrence: None)
  Receive Date: 20120604
  Receipt Date: 20120522
  Transmission Date: 20120825
  Serious: Yes (Death, Hospitalization)
  Sender: FDA-Public Use
  Company Number: DE-BRISTOL-MYERS SQUIBB COMPANY-16410615

PATIENT
  Age: 76 Year
  Sex: Male
  Weight: 71 kg

DRUGS (2)
  1. ERBITUX [Suspect]
     Indication: COLORECTAL CANCER METASTATIC
     Dosage: 29SEP11-29SEP11,RESTARTED:06OCT2011-07FEB12;124D,250MG/M2 WEEKLY
     Route: 042
     Dates: start: 20110929, end: 20120207
  2. CAPECITABINE [Concomitant]
     Indication: RECTAL CANCER
     Dosage: INTERRUPTED FROM 13-17OCT11
     Route: 042
     Dates: start: 20110929

REACTIONS (4)
  - DIZZINESS [None]
  - HEPATIC FAILURE [None]
  - HYPOTENSION [None]
  - GENERAL PHYSICAL HEALTH DETERIORATION [None]
